FAERS Safety Report 5079118-9 (Version None)
Quarter: 2006Q3

REPORT INFORMATION
  Report Type: 
  Country: None (occurrence: None)
  Receive Date: 20060808
  Receipt Date: 20060728
  Transmission Date: 20061208
  Serious: Yes (Death, Life-Threatening, Hospitalization, Other)
  Sender: FDA-Public Use
  Company Number: 2005082623

PATIENT
  Age: 56 Year
  Sex: Female

DRUGS (8)
  1. LIPITOR [Suspect]
     Indication: HYPERLIPIDAEMIA
     Dosage: 5 MG (5 MG, 1 IN 1 D), ORAL
     Route: 048
     Dates: start: 20030701, end: 20050422
  2. LEVOFLOXACIN [Suspect]
     Indication: NASOPHARYNGITIS
     Dosage: 300 MG, ORAL
     Route: 048
     Dates: start: 20050425, end: 20050426
  3. ALL OTHER THERAPEUTIC PRODUCTS (ALL OTHER THERAPEUTIC PRODUCTS) [Suspect]
  4. TRANSAMIN (TRANEXAMIC ACID) [Concomitant]
  5. ALL OTHER THERAPEUTIC PRODUCTS (ALL OTHER THERAPEUTIC PRODUCTS) [Concomitant]
  6. SALICYLAMIDE (SALICYLAMIDE) [Concomitant]
  7. ACETAMINOPHEN [Concomitant]
  8. CAFFEINE (CAFFEINE) [Concomitant]

REACTIONS (7)
  - DIALYSIS [None]
  - DISSEMINATED INTRAVASCULAR COAGULATION [None]
  - NASOPHARYNGITIS [None]
  - PANCYTOPENIA [None]
  - RENAL FAILURE ACUTE [None]
  - RHABDOMYOLYSIS [None]
  - TOXIC EPIDERMAL NECROLYSIS [None]
